FAERS Safety Report 8998187 (Version 1)
Quarter: 2013Q1

REPORT INFORMATION
  Report Type: Spontaneous
  Country: FR (occurrence: FR)
  Receive Date: 20130104
  Receipt Date: 20130104
  Transmission Date: 20140127
  Serious: Yes (Hospitalization)
  Sender: FDA-Public Use
  Company Number: FR-SANOFI-AVENTIS-2012SA095504

PATIENT
  Age: 84 Year
  Sex: Female

DRUGS (12)
  1. PIRILENE [Suspect]
     Indication: TUBERCULOSIS
     Route: 065
     Dates: start: 20110629, end: 20110710
  2. RIFADINE [Suspect]
     Indication: TUBERCULOSIS
     Route: 065
     Dates: start: 20110630, end: 20110717
  3. MYAMBUTOL [Suspect]
     Indication: PRODUCT USED FOR UNKNOWN INDICATION
     Route: 065
     Dates: start: 20110628, end: 20110717
  4. SERESTA [Concomitant]
  5. AMLOR [Concomitant]
  6. NOCTRAN [Concomitant]
  7. PARACETAMOL [Concomitant]
  8. LAROXYL [Concomitant]
  9. SPECIAFOLDINE [Concomitant]
  10. FORLAX [Concomitant]
  11. PRIMPERAN [Concomitant]
  12. PREDNISONE [Concomitant]

REACTIONS (1)
  - Hepatocellular injury [Recovered/Resolved]
